FAERS Safety Report 6525104-9 (Version None)
Quarter: 2010Q1

REPORT INFORMATION
  Report Type: 
  Country: None (occurrence: None)
  Receive Date: 20100104
  Receipt Date: 20091216
  Transmission Date: 20100710
  Serious: Yes (Death)
  Sender: FDA-Public Use
  Company Number: US-ROCHE-676118

PATIENT
  Age: 38 Year
  Sex: Female

DRUGS (2)
  1. BEVACIZUMAB [Suspect]
     Indication: ADRENAL GLAND CANCER METASTATIC
     Dosage: FREQUENCY: OVER 90-30 MINUTES ON DAYS 1,15 AND 29.
     Route: 042
     Dates: start: 20091030, end: 20091030
  2. SUNITINIB MALATE [Suspect]
     Indication: ADRENAL GLAND CANCER METASTATIC
     Dosage: FREQUENCY: 1/DAY FROM DAYS 1-28. FORM: CAPSULE HARD
     Route: 048
     Dates: start: 20091030, end: 20091031

REACTIONS (1)
  - DISEASE PROGRESSION [None]
